FAERS Safety Report 24052863 (Version 2)
Quarter: 2024Q3

REPORT INFORMATION
  Report Type: Spontaneous
  Country: IT (occurrence: IT)
  Receive Date: 20240705
  Receipt Date: 20240830
  Transmission Date: 20241016
  Serious: Yes (Death, Other)
  Sender: VIIV
  Company Number: None

PATIENT

DRUGS (2)
  1. DOLUTEGRAVIR [Suspect]
     Active Substance: DOLUTEGRAVIR
     Indication: HIV infection
     Dosage: UNK
     Route: 065
     Dates: end: 20240331
  2. DORAVIRINE [Suspect]
     Active Substance: DORAVIRINE
     Indication: HIV infection
     Dosage: UNK
     Route: 048
     Dates: end: 20240331

REACTIONS (1)
  - Death [Fatal]

NARRATIVE: CASE EVENT DATE: 20240331
